FAERS Safety Report 8159271 (Version 4)
Quarter: 2013Q2

REPORT INFORMATION
  Report Type: Report from Study
  Country: US (occurrence: US)
  Receive Date: 20110928
  Receipt Date: 20130610
  Transmission Date: 20140414
  Serious: Yes (Hospitalization)
  Sender: FDA-Public Use
  Company Number: US-JNJFOC-20110907538

PATIENT
  Age: 16 Year
  Sex: Female
  Weight: 84.2 kg

DRUGS (2)
  1. REMICADE [Suspect]
     Indication: CROHN^S DISEASE
     Route: 042
     Dates: start: 20040206
  2. ANTIBIOTICS [Concomitant]

REACTIONS (2)
  - Anal fissure [Recovered/Resolved]
  - Constipation [Recovered/Resolved]
